FAERS Safety Report 9847895 (Version 2)
Quarter: 2014Q1

REPORT INFORMATION
  Report Type: Report from Study
  Country: EG (occurrence: EG)
  Receive Date: 20140128
  Receipt Date: 20140128
  Transmission Date: 20141002
  Serious: Yes (Hospitalization, Other)
  Sender: FDA-Public Use
  Company Number: EG-ROCHE-1309448

PATIENT
  Age: 49 Year
  Sex: Female
  Weight: 86 kg

DRUGS (6)
  1. PEGASYS [Suspect]
     Indication: HEPATITIS C
     Route: 058
     Dates: start: 20130725, end: 20140109
  2. COPEGUS [Suspect]
     Indication: HEPATITIS C
     Route: 048
     Dates: start: 20130725, end: 20140109
  3. COPEGUS [Suspect]
     Dosage: 200 THREE TAB
     Route: 048
     Dates: start: 20131101, end: 20140109
  4. GLUCOPHAGE [Concomitant]
     Indication: DIABETES MELLITUS
     Route: 048
     Dates: start: 2000
  5. INSULIN MIXTARD [Concomitant]
     Indication: DIABETES MELLITUS
     Dosage: 50 IU AND 20 IU
     Route: 058
     Dates: start: 2000
  6. LASILACTONE [Concomitant]
     Route: 048
     Dates: start: 20140114

REACTIONS (10)
  - Anaemia [Recovering/Resolving]
  - Fatigue [Recovered/Resolved]
  - Pruritus [Not Recovered/Not Resolved]
  - Dizziness [Recovered/Resolved]
  - Hypersensitivity [Not Recovered/Not Resolved]
  - Burning sensation [Unknown]
  - Skin ulcer [Unknown]
  - Dyspnoea [Not Recovered/Not Resolved]
  - Generalised oedema [Unknown]
  - Respiratory distress [Unknown]
